FAERS Safety Report 5413462-8 (Version None)
Quarter: 2007Q3

REPORT INFORMATION
  Report Type: 
  Country: None (occurrence: None)
  Receive Date: 20070809
  Receipt Date: 20070809
  Transmission Date: 20080115
  Serious: Yes (Hospitalization)
  Sender: FDA-Public Use
  Company Number: None

PATIENT
  Age: 55 Year
  Sex: Female
  Weight: 74.3899 kg

DRUGS (12)
  1. COENZYME Q10 [Suspect]
     Indication: FATIGUE
     Dosage: 10 MG PO BID
     Route: 048
  2. TAXOTERE [Concomitant]
  3. NEULASTA [Concomitant]
  4. PROZAC [Concomitant]
  5. MIRAPEX [Concomitant]
  6. NADOLOL [Concomitant]
  7. COZAAR [Concomitant]
  8. DURAGESIC-100 [Concomitant]
  9. NORTRIPYLINE [Concomitant]
  10. POTASSIUM CHLORIDE [Concomitant]
  11. ZYPREXA [Concomitant]
  12. ADERALL [Concomitant]

REACTIONS (1)
  - DEHYDRATION [None]
